FAERS Safety Report 5442047-2 (Version None)
Quarter: 2007Q3

REPORT INFORMATION
  Report Type: 
  Country: None (occurrence: None)
  Receive Date: 20070829
  Receipt Date: 20070820
  Transmission Date: 20080115
  Serious: Yes (Death)
  Sender: FDA-Public Use
  Company Number: CLOF-10640

PATIENT
  Age: 22 Year
  Sex: Male

DRUGS (1)
  1. CLOLAR [Suspect]
     Indication: ACUTE LYMPHOCYTIC LEUKAEMIA
     Dosage: 60 MG DAILY IV
     Route: 042
     Dates: start: 20070809, end: 20070813

REACTIONS (1)
  - BLOOD BILIRUBIN INCREASED [None]
